FAERS Safety Report 14267316 (Version 1)
Quarter: 2017Q4

REPORT INFORMATION
  Report Type: Spontaneous
  Country: US (occurrence: US)
  Receive Date: 20171208
  Receipt Date: 20171208
  Transmission Date: 20180321
  Serious: Yes (Other)
  Sender: FDA-Public Use
  Company Number: None

PATIENT
  Sex: Male
  Weight: 52.65 kg

DRUGS (2)
  1. RISPERDAL [Suspect]
     Active Substance: RISPERIDONE
     Indication: MENTAL DISORDER
     Route: 008
     Dates: end: 20060601
  2. INVEGA [Suspect]
     Active Substance: PALIPERIDONE

REACTIONS (8)
  - Educational problem [None]
  - Paranoia [None]
  - Irritability [None]
  - Chest discomfort [None]
  - Restless legs syndrome [None]
  - Quality of life decreased [None]
  - Loss of employment [None]
  - Feeling abnormal [None]
